FAERS Safety Report 20067257 (Version 2)
Quarter: 2021Q4

REPORT INFORMATION
  Report Type: Report from Study
  Country: PT (occurrence: PT)
  Receive Date: 20211115
  Receipt Date: 20211121
  Transmission Date: 20220303
  Serious: Yes (Other)
  Sender: FDA-Public Use
  Company Number: PT-ABBVIE-21K-130-4158446-00

PATIENT
  Age: 54 Year
  Sex: Female

DRUGS (1)
  1. HUMIRA [Suspect]
     Active Substance: ADALIMUMAB
     Indication: Ankylosing spondylitis
     Route: 058
     Dates: start: 20180928, end: 20211029

REACTIONS (2)
  - Nail infection [Recovered/Resolved]
  - Intentional product misuse [Unknown]

NARRATIVE: CASE EVENT DATE: 20211101
